FAERS Safety Report 9775058 (Version 1)
Quarter: 2013Q4

REPORT INFORMATION
  Report Type: Spontaneous
  Country: US (occurrence: US)
  Receive Date: 20131220
  Receipt Date: 20131220
  Transmission Date: 20140711
  Serious: No
  Sender: FDA-Public Use
  Company Number: US-PFIZER INC-2013362442

PATIENT
  Age: 65 Year
  Sex: Female
  Weight: 72.56 kg

DRUGS (1)
  1. ADVIL [Suspect]
     Indication: TOOTHACHE
     Dosage: 400 MG, TWO TIMES A DAY
     Route: 048
     Dates: start: 20131201, end: 20131215

REACTIONS (2)
  - Ear pain [Unknown]
  - Inflammation [Unknown]
